FAERS Safety Report 7907710-X (Version None)
Quarter: 2011Q4

REPORT INFORMATION
  Report Type: 
  Country: None (occurrence: None)
  Receive Date: 20111110
  Receipt Date: 20111028
  Transmission Date: 20120403
  Serious: Yes (Disabling, Other)
  Sender: FDA-Public Use
  Company Number: CA-ELI_LILLY_AND_COMPANY-CA201108008800

PATIENT
  Sex: Female
  Weight: 87 kg

DRUGS (4)
  1. CYMBALTA [Suspect]
     Indication: FIBROMYALGIA
     Dosage: 30 MG, QD
     Route: 048
     Dates: start: 20091101
  2. LYRICA [Concomitant]
     Indication: FIBROMYALGIA
  3. CYMBALTA [Suspect]
     Dosage: 60 MG, QD
     Route: 048
     Dates: end: 20101201
  4. IBUPROFEN [Concomitant]

REACTIONS (1)
  - EOSINOPHILIC COLITIS [None]
